FAERS Safety Report 23353374 (Version 1)
Quarter: 2023Q4

REPORT INFORMATION
  Report Type: Spontaneous
  Country: US (occurrence: None)
  Receive Date: 20231231
  Receipt Date: 20231231
  Transmission Date: 20240109
  Serious: No
  Sender: FDA-Public Use
  Company Number: 2023A287932

PATIENT
  Sex: Female

DRUGS (2)
  1. BYDUREON BCISE [Suspect]
     Active Substance: EXENATIDE
     Route: 058
  2. BYETTA [Concomitant]
     Active Substance: EXENATIDE
     Route: 058

REACTIONS (5)
  - Parkinson^s disease [Not Recovered/Not Resolved]
  - Frustration tolerance decreased [Not Recovered/Not Resolved]
  - Incorrect dose administered [Unknown]
  - Device use issue [Unknown]
  - Device leakage [Unknown]
